FAERS Safety Report 5040432-4 (Version None)
Quarter: 2006Q2

REPORT INFORMATION
  Report Type: 
  Country: None (occurrence: None)
  Receive Date: 20060630
  Receipt Date: 20060623
  Transmission Date: 20061013
  Serious: Yes (Other)
  Sender: FDA-Public Use
  Company Number: GB-AMGEN-UK184037

PATIENT
  Sex: Female
  Weight: 85 kg

DRUGS (7)
  1. KINERET [Suspect]
     Indication: RHEUMATOID ARTHRITIS
     Route: 065
     Dates: start: 20040927, end: 20050929
  2. METHOTREXATE [Concomitant]
     Route: 065
  3. ASPIRIN [Concomitant]
     Route: 065
  4. BENDROFLUAZIDE [Concomitant]
     Route: 065
  5. GAVISCON [Concomitant]
     Route: 065
  6. LODINE [Concomitant]
     Route: 065
  7. SOLPADOL [Concomitant]
     Route: 065

REACTIONS (1)
  - BOWEN'S DISEASE [None]
